FAERS Safety Report 21388490 (Version 3)
Quarter: 2022Q4

REPORT INFORMATION
  Report Type: Report from Study
  Country: US (occurrence: None)
  Receive Date: 20220928
  Receipt Date: 20221020
  Transmission Date: 20230113
  Serious: Yes (Other)
  Sender: FDA-Public Use
  Company Number: 2022A112737

PATIENT
  Weight: 103.4 kg

DRUGS (1)
  1. LYNPARZA [Suspect]
     Active Substance: OLAPARIB
     Indication: Prostate cancer
     Route: 048
     Dates: start: 20220127

REACTIONS (4)
  - Renal failure [Unknown]
  - Prostatic specific antigen increased [Unknown]
  - Cystatin C increased [Unknown]
  - Blood creatinine increased [Unknown]
